FAERS Safety Report 19421258 (Version 2)
Quarter: 2021Q3

REPORT INFORMATION
  Report Type: Spontaneous
  Country: UA (occurrence: UA)
  Receive Date: 20210616
  Receipt Date: 20210819
  Transmission Date: 20211014
  Serious: Yes (Other)
  Sender: FDA-Public Use
  Company Number: UA-LUPIN PHARMACEUTICALS INC.-2021-09851

PATIENT
  Age: 62 Year
  Sex: Female

DRUGS (9)
  1. TORSEMIDE. [Concomitant]
     Active Substance: TORSEMIDE
     Indication: PULMONARY ARTERIAL HYPERTENSION
     Dosage: 10 MILLIGRAM
     Route: 065
  2. ASPIRIN. [Concomitant]
     Active Substance: ASPIRIN
     Indication: PULMONARY ARTERIAL HYPERTENSION
     Dosage: 75 MILLIGRAM
     Route: 065
  3. BOSENTAN. [Suspect]
     Active Substance: BOSENTAN
     Indication: PULMONARY ARTERIAL HYPERTENSION
     Dosage: 62.5 MILLIGRAM, BID
     Route: 065
  4. AMLODIPINE [Concomitant]
     Active Substance: AMLODIPINE BESYLATE
     Indication: PULMONARY ARTERIAL HYPERTENSION
     Dosage: 5 MILLIGRAM
     Route: 065
  5. ROSUVASTATIN. [Concomitant]
     Active Substance: ROSUVASTATIN
     Indication: PULMONARY ARTERIAL HYPERTENSION
     Dosage: 20 MILLIGRAM
     Route: 065
  6. VALSARTAN. [Concomitant]
     Active Substance: VALSARTAN
     Indication: PULMONARY ARTERIAL HYPERTENSION
     Dosage: 80 MILLIGRAM
     Route: 065
  7. SILDENAFIL. [Concomitant]
     Active Substance: SILDENAFIL
     Indication: PULMONARY ARTERIAL HYPERTENSION
     Dosage: UNK
     Route: 065
  8. BOSENTAN. [Suspect]
     Active Substance: BOSENTAN
     Dosage: 125 MILLIGRAM, BID
     Route: 065
  9. TICAGRELOR. [Concomitant]
     Active Substance: TICAGRELOR
     Indication: PULMONARY ARTERIAL HYPERTENSION
     Dosage: 90 MILLIGRAM, BID
     Route: 065

REACTIONS (2)
  - Iron deficiency anaemia [Not Recovered/Not Resolved]
  - Autoimmune hepatitis [Recovered/Resolved]
